FAERS Safety Report 12079081 (Version 2)
Quarter: 2016Q1

REPORT INFORMATION
  Report Type: Spontaneous
  Country: US (occurrence: US)
  Receive Date: 20160216
  Receipt Date: 20160309
  Transmission Date: 20160526
  Serious: No
  Sender: FDA-Public Use
  Company Number: US-PFIZER INC-2016063691

PATIENT
  Age: 79 Year
  Sex: Female
  Weight: 45.36 kg

DRUGS (1)
  1. ADVIL [Suspect]
     Active Substance: IBUPROFEN
     Indication: HEADACHE
     Dosage: 200 MG, UNK (2 TABLETS ON 2 SEPARATE DAYS)
     Route: 048
     Dates: start: 201601, end: 2016

REACTIONS (4)
  - Product coating issue [Recovered/Resolved]
  - Throat irritation [Recovered/Resolved]
  - Product use issue [Unknown]
  - Product colour issue [Recovered/Resolved]

NARRATIVE: CASE EVENT DATE: 201601
